FAERS Safety Report 8031013-9 (Version None)
Quarter: 2012Q1

REPORT INFORMATION
  Report Type: 
  Country: None (occurrence: None)
  Receive Date: 20120109
  Receipt Date: 20120105
  Transmission Date: 20120608
  Serious: Yes (Other)
  Sender: FDA-Public Use
  Company Number: PHEH2012US000694

PATIENT
  Age: 68 Year
  Sex: Male

DRUGS (11)
  1. OXYCONTIN [Concomitant]
  2. ALPRAZOLAM [Concomitant]
  3. VITAMIN E [Concomitant]
  4. ATENOLOL [Concomitant]
  5. ALTACE [Concomitant]
  6. TASIGNA [Suspect]
     Indication: CHRONIC MYELOID LEUKAEMIA
     Dosage: 400 MG, BID
     Route: 048
     Dates: start: 20100801
  7. M.V.I. [Concomitant]
  8. DULCOLAX [Concomitant]
  9. CLOTRIMAZOLE [Concomitant]
  10. BETAMETHASONE [Concomitant]
  11. FENTANYL [Concomitant]

REACTIONS (1)
  - PULMONARY OEDEMA [None]
